FAERS Safety Report 15788376 (Version 1)
Quarter: 2019Q1

REPORT INFORMATION
  Report Type: Spontaneous
  Country: US (occurrence: US)
  Receive Date: 20190104
  Receipt Date: 20190104
  Transmission Date: 20190417
  Serious: No
  Sender: FDA-Public Use
  Company Number: US-APOTEX-2017AP023554

PATIENT
  Sex: Female

DRUGS (1)
  1. CALCITONIN SALMON. [Suspect]
     Active Substance: CALCITONIN SALMON
     Indication: OSTEOPOROSIS
     Dosage: 1 SPRAY PER NOSTRIL ONCE A DAY
     Route: 045
     Dates: start: 201706, end: 201712

REACTIONS (3)
  - Blepharospasm [Not Recovered/Not Resolved]
  - Muscle twitching [Not Recovered/Not Resolved]
  - Facial spasm [Not Recovered/Not Resolved]
